FAERS Safety Report 9928270 (Version 1)
Quarter: 2014Q1

REPORT INFORMATION
  Report Type: Spontaneous
  Country: US (occurrence: None)
  Receive Date: 20140226
  Receipt Date: 20140226
  Transmission Date: 20141002
  Serious: Yes (Disabling)
  Sender: FDA-Public Use
  Company Number: None

PATIENT
  Age: 53 Year
  Sex: Male
  Weight: 106.6 kg

DRUGS (1)
  1. REMICADE [Suspect]
     Indication: ANKYLOSING SPONDYLITIS
     Dosage: INFUSION

REACTIONS (9)
  - Neck pain [None]
  - Pain in jaw [None]
  - Musculoskeletal pain [None]
  - Oropharyngeal pain [None]
  - Headache [None]
  - Dizziness [None]
  - Chest pain [None]
  - Dyspnoea [None]
  - Visual impairment [None]
